FAERS Safety Report 4516321-8 (Version None)
Quarter: 2004Q4

REPORT INFORMATION
  Report Type: 
  Country: None (occurrence: None)
  Receive Date: 20041027
  Receipt Date: 20040625
  Transmission Date: 20050328
  Serious: No
  Sender: FDA-Public Use
  Company Number: US081609

PATIENT
  Sex: 0

DRUGS (1)
  1. SENSIPAR [Suspect]
     Indication: HYPERPARATHYROIDISM SECONDARY
     Dosage: 1 IN 1
     Dates: start: 20040101, end: 20040101

REACTIONS (3)
  - ERYTHEMA [None]
  - FEELING HOT [None]
  - RASH MACULAR [None]
